FAERS Safety Report 19885905 (Version 2)
Quarter: 2021Q4

REPORT INFORMATION
  Report Type: Spontaneous
  Country: BE (occurrence: BE)
  Receive Date: 20210927
  Receipt Date: 20211005
  Transmission Date: 20220303
  Serious: Yes (Hospitalization)
  Sender: FDA-Public Use
  Company Number: BE-CELGENE-BEL-20210407526

PATIENT
  Age: 78 Year
  Sex: Male
  Weight: 89 kg

DRUGS (21)
  1. AZACITIDINE [Suspect]
     Active Substance: AZACITIDINE
     Indication: Myelodysplastic syndrome
     Dosage: 75 MILLIGRAM/SQ. METER, QD
     Route: 058
     Dates: start: 20210315
  2. VENETOCLAX [Suspect]
     Active Substance: VENETOCLAX
     Indication: Myelodysplastic syndrome
     Dosage: UNK
     Route: 065
  3. AMOXICILLIN\CLAVULANATE POTASSIUM [Concomitant]
     Active Substance: AMOXICILLIN\CLAVULANATE POTASSIUM
     Indication: Pyrexia
     Dosage: UNK
     Route: 065
     Dates: start: 20210326, end: 20210330
  4. AMOXICILLIN\CLAVULANATE POTASSIUM [Concomitant]
     Active Substance: AMOXICILLIN\CLAVULANATE POTASSIUM
     Indication: Neutropenia
     Dosage: UNK
     Route: 065
     Dates: start: 20210405, end: 20210414
  5. SPIRONOLACTONE [Concomitant]
     Active Substance: SPIRONOLACTONE
     Indication: Hypertension
     Dosage: 25 MILLIGRAM
     Route: 048
     Dates: start: 2008
  6. ATORVASTATIN [Concomitant]
     Active Substance: ATORVASTATIN
     Indication: Hypercholesterolaemia
     Dosage: 80 MILLIGRAM, QD
     Route: 048
     Dates: start: 200409, end: 20210322
  7. ATORVASTATIN [Concomitant]
     Active Substance: ATORVASTATIN
     Dosage: 40 MILLIGRAM, QD
     Route: 048
     Dates: start: 20210323
  8. AMLODIPINE [Concomitant]
     Active Substance: AMLODIPINE BESYLATE
     Indication: Hypertension
     Dosage: 5 MILLIGRAM, QD
     Route: 048
     Dates: start: 2020
  9. ALLOPURINOL [Concomitant]
     Active Substance: ALLOPURINOL
     Indication: Prophylaxis
     Dosage: 300 MILLIGRAM
     Route: 048
     Dates: start: 20210315, end: 20210330
  10. FILGRASTIM [Concomitant]
     Active Substance: FILGRASTIM
     Indication: Neutropenia
     Dosage: 480 MICROGRAM
     Route: 058
     Dates: start: 20210326
  11. ACYCLOVIR [Concomitant]
     Active Substance: ACYCLOVIR
     Indication: Infection prophylaxis
     Dosage: 1200 MILLIGRAM
     Route: 048
     Dates: start: 20210329
  12. CEFEPIME HYDROCHLORIDE [Concomitant]
     Active Substance: CEFEPIME HYDROCHLORIDE
     Indication: Febrile neutropenia
     Dosage: UNK
     Route: 065
     Dates: start: 20210323, end: 20210326
  13. TELMISARTAN [Concomitant]
     Active Substance: TELMISARTAN
     Indication: Hypertension
     Dosage: 80/12.5 MILLIGRAM
     Route: 048
     Dates: start: 200407, end: 20210421
  14. BISOPROLOL [Concomitant]
     Active Substance: BISOPROLOL
     Indication: Hypertension
     Dosage: 2.5 MILLIGRAM
     Route: 048
     Dates: start: 2008
  15. BISOPROLOL [Concomitant]
     Active Substance: BISOPROLOL
     Indication: Cardiac failure
     Dosage: 25 MILLIGRAM, QD
     Route: 048
     Dates: start: 2008
  16. ACETAMINOPHEN [Concomitant]
     Active Substance: ACETAMINOPHEN
     Indication: Pyrexia
     Dosage: 1 GRAM
     Route: 048
     Dates: start: 20210322
  17. ASPIRIN [Concomitant]
     Active Substance: ASPIRIN
     Indication: Carotid artery stenosis
     Dosage: 80 MILLIGRAM, QD
     Route: 048
     Dates: start: 20210405
  18. ASPIRIN [Concomitant]
     Active Substance: ASPIRIN
     Indication: Prophylaxis
  19. ASPIRIN [Concomitant]
     Active Substance: ASPIRIN
     Indication: Angioplasty
  20. CLOPIDOGREL BESILATE [Concomitant]
     Active Substance: CLOPIDOGREL BESILATE
     Indication: Myocardial infarction
     Dosage: 75 MILLIGRAM, QD
     Dates: start: 20210414
  21. MOVICOL [Concomitant]
     Active Substance: POLYETHYLENE GLYCOL 3350\POTASSIUM CHLORIDE\SODIUM BICARBONATE\SODIUM CHLORIDE
     Indication: Constipation
     Dosage: UNK
     Route: 048
     Dates: start: 20210322

REACTIONS (3)
  - Syncope [Recovered/Resolved]
  - General physical condition abnormal [Not Recovered/Not Resolved]
  - Febrile neutropenia [Recovered/Resolved]

NARRATIVE: CASE EVENT DATE: 20210420
